FAERS Safety Report 19686912 (Version 2)
Quarter: 2021Q3

REPORT INFORMATION
  Report Type: Spontaneous
  Country: IE (occurrence: IE)
  Receive Date: 20210811
  Receipt Date: 20210820
  Transmission Date: 20211014
  Serious: No
  Sender: FDA-Public Use
  Company Number: IE-JNJFOC-20210803571

PATIENT

DRUGS (3)
  1. DUROGESIC D?TRANS [Suspect]
     Active Substance: FENTANYL
     Indication: PRODUCT USED FOR UNKNOWN INDICATION
     Dosage: STRENGTH: 75.00 MCG/HR
     Route: 062
  2. DUROGESIC D?TRANS [Suspect]
     Active Substance: FENTANYL
  3. DUROGESIC D?TRANS [Suspect]
     Active Substance: FENTANYL

REACTIONS (1)
  - Product physical issue [Unknown]
